FAERS Safety Report 23523798 (Version 2)
Quarter: 2024Q2

REPORT INFORMATION
  Report Type: Spontaneous
  Country: CA (occurrence: CA)
  Receive Date: 20240214
  Receipt Date: 20240409
  Transmission Date: 20240715
  Serious: Yes (Other)
  Sender: FDA-Public Use
  Company Number: CA-PFIZER INC-202300049723

PATIENT
  Age: 65 Year
  Sex: Male

DRUGS (2)
  1. ABRILADA [Suspect]
     Active Substance: ADALIMUMAB-AFZB
     Dosage: 1 DF, UNK DOSE - UNK DOSE FORMAT
     Route: 058
     Dates: start: 2022
  2. ABRILADA [Suspect]
     Active Substance: ADALIMUMAB-AFZB
     Dosage: 40 MG, EVERY 10 DAYS
     Route: 058
     Dates: start: 2023

REACTIONS (7)
  - Fall [Unknown]
  - Cervical vertebral fracture [Unknown]
  - Clavicle fracture [Unknown]
  - Breakthrough pain [Not Recovered/Not Resolved]
  - Arthralgia [Recovering/Resolving]
  - Back pain [Recovering/Resolving]
  - Off label use [Unknown]
